FAERS Safety Report 20871974 (Version 1)
Quarter: 2022Q2

REPORT INFORMATION
  Report Type: Spontaneous
  Country: US (occurrence: None)
  Receive Date: 20220524
  Receipt Date: 20220524
  Transmission Date: 20220720
  Serious: No
  Sender: FDA-Public Use
  Company Number: None

PATIENT
  Age: 26 Year
  Sex: Male
  Weight: 63 kg

DRUGS (2)
  1. CHLORHEXIDINE GLUCONATE [Suspect]
     Active Substance: CHLORHEXIDINE GLUCONATE
     Indication: Antibiotic prophylaxis
     Dosage: OTHER QUANTITY : 15 MILLILITER;?FREQUENCY : TWICE A DAY;?OTHER ROUTE : ORAL RINSE;?
     Route: 050
     Dates: start: 20220523, end: 20220524
  2. 500mg fish oil per day [Concomitant]

REACTIONS (6)
  - Burn oral cavity [None]
  - Oral discomfort [None]
  - Vomiting [None]
  - Ageusia [None]
  - Tongue discolouration [None]
  - Gingival bleeding [None]

NARRATIVE: CASE EVENT DATE: 20220523
